FAERS Safety Report 4936553-4 (Version None)
Quarter: 2006Q1

REPORT INFORMATION
  Report Type: 
  Country: None (occurrence: None)
  Receive Date: 20060302
  Receipt Date: 20060206
  Transmission Date: 20060701
  Serious: Yes (Other)
  Sender: FDA-Public Use
  Company Number: US200602001892

PATIENT
  Sex: Male

DRUGS (5)
  1. CYMBALTA [Suspect]
     Dosage: 30 MG, DAILY (1/D), ORAL
     Route: 048
  2. ZYPREXA [Suspect]
     Dosage: 20 MG, 2/D, ORAL
     Route: 048
  3. OXCARBAZEPINE [Concomitant]
  4. LITHIUM (LITHIUM) [Concomitant]
  5. SEROQUEL [Concomitant]

REACTIONS (2)
  - BLOOD PRESSURE INCREASED [None]
  - PRESCRIBED OVERDOSE [None]
